FAERS Safety Report 15313643 (Version 1)
Quarter: 2018Q3

REPORT INFORMATION
  Report Type: Report from Study
  Country: GB (occurrence: GB)
  Receive Date: 20180824
  Receipt Date: 20180824
  Transmission Date: 20181010
  Serious: Yes (Hospitalization, Other)
  Sender: FDA-Public Use
  Company Number: GB-BRISTOL-MYERS SQUIBB COMPANY-BMS-2016-027152

PATIENT
  Age: 27 Year
  Sex: Female

DRUGS (1)
  1. ABATACEPT [Suspect]
     Active Substance: ABATACEPT
     Indication: RHEUMATOID ARTHRITIS
     Dosage: 125 MG, QWK
     Route: 058
     Dates: start: 20150430

REACTIONS (7)
  - Infection [Unknown]
  - Cough [Unknown]
  - Sinusitis [Unknown]
  - Malaise [Unknown]
  - Sinus operation [Unknown]
  - Lower respiratory tract infection [Unknown]
  - Abscess [Unknown]

NARRATIVE: CASE EVENT DATE: 20180806
